FAERS Safety Report 14196203 (Version 3)
Quarter: 2017Q4

REPORT INFORMATION
  Report Type: Spontaneous
  Country: US (occurrence: US)
  Receive Date: 20171116
  Receipt Date: 20171206
  Transmission Date: 20180321
  Serious: Yes (Other)
  Sender: FDA-Public Use
  Company Number: US-MALLINCKRODT-T201704542

PATIENT
  Sex: Female

DRUGS (3)
  1. FENTANYL TRANSDERMAL SYSTEM [Suspect]
     Active Substance: FENTANYL
     Indication: PAIN
     Dosage: 75 MCG/ HOUR
     Route: 065
     Dates: start: 201706
  2. FENTANYL TRANSDERMAL SYSTEM [Suspect]
     Active Substance: FENTANYL
     Dosage: 50 MCG/HR
     Route: 065
  3. FENTANYL TRANSDERMAL SYSTEM [Suspect]
     Active Substance: FENTANYL
     Dosage: 100 MCG/HR
     Route: 065

REACTIONS (7)
  - Apparent death [Unknown]
  - Muscle spasms [Unknown]
  - Pain [Unknown]
  - Tremor [Unknown]
  - Delirium tremens [Unknown]
  - Withdrawal syndrome [Unknown]
  - Malaise [Unknown]
